FAERS Safety Report 6012186-6 (Version None)
Quarter: 2008Q4

REPORT INFORMATION
  Report Type: 
  Country: None (occurrence: None)
  Receive Date: 20081216
  Receipt Date: 20071211
  Transmission Date: 20090506
  Serious: Yes (Life-Threatening, Hospitalization, Other)
  Sender: FDA-Public Use
  Company Number: US-WYE-H01687907

PATIENT
  Age: 53 Year
  Sex: Female
  Weight: 59.02 kg

DRUGS (2)
  1. EFFEXOR XR [Suspect]
     Indication: DEPRESSION
     Dosage: 37.5 MG 1X PER 1 DAY, ORAL
     Route: 047
     Dates: start: 20071005, end: 20071007
  2. LUNESTA [Concomitant]

REACTIONS (2)
  - HYPERTENSION [None]
  - MALAISE [None]
